FAERS Safety Report 12310163 (Version 2)
Quarter: 2016Q2

REPORT INFORMATION
  Report Type: Spontaneous
  Country: US (occurrence: US)
  Receive Date: 20160427
  Receipt Date: 20160428
  Transmission Date: 20160815
  Serious: Yes (Hospitalization)
  Sender: FDA-Public Use
  Company Number: US-SA-2016SA080342

PATIENT
  Age: 66 Year
  Sex: Female
  Weight: 95.25 kg

DRUGS (3)
  1. COUMADIN [Suspect]
     Active Substance: WARFARIN SODIUM
     Indication: ANTICOAGULANT THERAPY
     Route: 065
  2. CLOPIDOGREL BISULFATE. [Suspect]
     Active Substance: CLOPIDOGREL BISULFATE
     Indication: ANTIPLATELET THERAPY
     Route: 065
  3. ASPIRIN. [Suspect]
     Active Substance: ASPIRIN
     Indication: ANTIPLATELET THERAPY
     Route: 065

REACTIONS (11)
  - Paraesthesia [Recovering/Resolving]
  - Peroneal nerve palsy [Recovering/Resolving]
  - Back pain [Recovered/Resolved]
  - Muscle haemorrhage [Recovered/Resolved]
  - Muscular weakness [Recovering/Resolving]
  - Nerve compression [Recovered/Resolved]
  - Hyperaesthesia [Not Recovered/Not Resolved]
  - Oedema [Recovered/Resolved]
  - Inflammation [Recovered/Resolved]
  - Sciatic nerve palsy [Recovering/Resolving]
  - Pain in extremity [Recovered/Resolved]
